FAERS Safety Report 24233921 (Version 2)
Quarter: 2024Q4

REPORT INFORMATION
  Report Type: Spontaneous
  Country: FR (occurrence: FR)
  Receive Date: 20240821
  Receipt Date: 20241023
  Transmission Date: 20250114
  Serious: Yes (Hospitalization)
  Sender: MERCK
  Company Number: None

PATIENT
  Age: 68 Year
  Sex: Female

DRUGS (1)
  1. KEYTRUDA [Suspect]
     Active Substance: PEMBROLIZUMAB
     Indication: Breast cancer
     Dosage: UNK, Q3W
     Route: 042
     Dates: start: 20240613, end: 20240704

REACTIONS (1)
  - Joint effusion [Recovering/Resolving]

NARRATIVE: CASE EVENT DATE: 20240726
